FAERS Safety Report 17533044 (Version 1)
Quarter: 2020Q1

REPORT INFORMATION
  Report Type: Spontaneous
  Country: US (occurrence: US)
  Receive Date: 20200303
  Receipt Date: 20200303
  Transmission Date: 20200409
  Serious: Yes (Other)
  Sender: FDA-Public Use
  Company Number: None

PATIENT
  Sex: Female
  Weight: 116.12 kg

DRUGS (27)
  1. BREATHING MACHINE [Concomitant]
  2. TRIAMT\HCTZ [Concomitant]
     Active Substance: HYDROCHLOROTHIAZIDE\TRIAMTERENE
  3. MUPIROCIN. [Concomitant]
     Active Substance: MUPIROCIN
  4. TRUDO  INJ [Concomitant]
  5. CENTRUM SILVER [Concomitant]
     Active Substance: MINERALS\VITAMINS
  6. OMEPRAZOLE DR [Concomitant]
     Active Substance: OMEPRAZOLE
  7. SIMPONI [Suspect]
     Active Substance: GOLIMUMAB
     Indication: RHEUMATOID ARTHRITIS
     Dosage: ?          OTHER FREQUENCY:EVERY 2 MONTHS;OTHER ROUTE:INFUSION?
     Dates: start: 2018, end: 2019
  8. ORENCIA [Suspect]
     Active Substance: ABATACEPT
     Indication: RHEUMATOID ARTHRITIS
     Dates: start: 2019, end: 2020
  9. FLUTICASONE NASAL SPRAY [Concomitant]
     Active Substance: FLUTICASONE
  10. LEFLUNOMIDE. [Concomitant]
     Active Substance: LEFLUNOMIDE
  11. METHOCARBAMOL. [Concomitant]
     Active Substance: METHOCARBAMOL
  12. VITAMIN D3 [Concomitant]
     Active Substance: CHOLECALCIFEROL
  13. DICLOFENAC [Concomitant]
     Active Substance: DICLOFENAC
  14. TOPIRAMTE [Concomitant]
     Active Substance: TOPIRAMATE
  15. FOLIC ACID. [Concomitant]
     Active Substance: FOLIC ACID
  16. FLUTIC/SALMEROL [Concomitant]
  17. DISKUS [Concomitant]
  18. PRAVASTATIN. [Concomitant]
     Active Substance: PRAVASTATIN
  19. GABAPENTIN. [Concomitant]
     Active Substance: GABAPENTIN
  20. DILTIAZEM. [Concomitant]
     Active Substance: DILTIAZEM
  21. VITAMIN C [Concomitant]
     Active Substance: ASCORBIC ACID
  22. CALCIUM [Concomitant]
     Active Substance: CALCIUM
  23. CPAP MACHINE [Concomitant]
  24. TRIAMCINOLONE [Concomitant]
     Active Substance: TRIAMCINOLONE
  25. TRAMADOL. [Concomitant]
     Active Substance: TRAMADOL
  26. IRON [Concomitant]
     Active Substance: IRON
  27. CHEWABLE ASPIRIN [Concomitant]
     Active Substance: ASPIRIN

REACTIONS (3)
  - Pruritus [None]
  - Burning sensation [None]
  - Skin disorder [None]
